FAERS Safety Report 9511542 (Version 1)
Quarter: 2013Q3

REPORT INFORMATION
  Report Type: Spontaneous
  Country: US (occurrence: None)
  Receive Date: 20130909
  Receipt Date: 20130909
  Transmission Date: 20140515
  Serious: Yes (Disabling, Other)
  Sender: FDA-Public Use
  Company Number: None

PATIENT
  Age: 47 Year
  Sex: Female
  Weight: 61.24 kg

DRUGS (3)
  1. MIRENA [Suspect]
  2. MULTIVITAMIN [Concomitant]
  3. IRON SUPPLEMENT [Concomitant]
     Dates: start: 20130821, end: 20130906

REACTIONS (7)
  - Haemorrhage [None]
  - Back pain [None]
  - Weight increased [None]
  - Abdominal distension [None]
  - Pain [None]
  - Urine output decreased [None]
  - Headache [None]
